FAERS Safety Report 26037154 (Version 1)
Quarter: 2025Q4

REPORT INFORMATION
  Report Type: Spontaneous
  Country: US (occurrence: US)
  Receive Date: 20251112
  Receipt Date: 20251112
  Transmission Date: 20260117
  Serious: Yes (Death, Hospitalization, Other)
  Sender: AMGEN
  Company Number: US-AMGEN-USASP2025218784

PATIENT
  Age: 56 Year
  Sex: Female

DRUGS (5)
  1. PREDNISONE [Suspect]
     Active Substance: PREDNISONE
     Indication: Scleroedema
     Dosage: 60 MILLIGRAM, QD (HIGH-DOSE)
     Route: 065
  2. PREDNISONE [Suspect]
     Active Substance: PREDNISONE
     Dosage: UNK, QD (TAPERED OVER SEVERAL WEEKS/TAPERED BELOW 20-25 MG)
     Route: 065
  3. PREDNISONE [Suspect]
     Active Substance: PREDNISONE
     Dosage: 20 MILLIGRAM (EVERY OTHER DAY)
     Route: 065
  4. PREDNISONE [Suspect]
     Active Substance: PREDNISONE
     Dosage: 15 MILLIGRAM (EVERY OTHER DAY)
     Route: 065
  5. PREDNISONE [Suspect]
     Active Substance: PREDNISONE
     Dosage: 5 MILLIGRAM, QD
     Route: 065

REACTIONS (10)
  - Death [Fatal]
  - Acute respiratory failure [Unknown]
  - Scleroedema [Recovering/Resolving]
  - Interstitial lung disease [Unknown]
  - Triple negative breast cancer [Unknown]
  - Pulmonary embolism [Unknown]
  - Embolism venous [Unknown]
  - Drug effective for unapproved indication [Unknown]
  - Benign breast neoplasm [Unknown]
  - Off label use [Unknown]
